FAERS Safety Report 8315231-8 (Version None)
Quarter: 2012Q2

REPORT INFORMATION
  Report Type: 
  Country: None (occurrence: None)
  Receive Date: 20120426
  Receipt Date: 20110513
  Transmission Date: 20120825
  Serious: No
  Sender: FDA-Public Use
  Company Number: US-MYLANLABS-2011S1008860

PATIENT
  Age: 73 Year
  Sex: Male

DRUGS (12)
  1. DILTIAZEM HCL [Suspect]
     Indication: ATRIAL FIBRILLATION
     Route: 048
     Dates: start: 20110302, end: 20110504
  2. TYLENOL (CAPLET) [Concomitant]
     Dosage: ONCE OR TWICE A WEEK
  3. SOTALOL HCL [Concomitant]
     Indication: BLOOD PRESSURE INCREASED
  4. VITAMIN D2 [Concomitant]
  5. DILTIAZEM HCL [Suspect]
     Indication: HEART RATE INCREASED
     Route: 048
     Dates: start: 20110302, end: 20110504
  6. COUMADIN [Concomitant]
  7. METAMUCIL-2 [Concomitant]
     Dosage: 1 TABLESPOON EVERY EVENING
  8. PRAVASTATIN [Concomitant]
  9. SODIUM CHLORIDE [Concomitant]
     Route: 055
  10. DILTIAZEM HCL [Suspect]
     Indication: BLOOD PRESSURE INCREASED
     Route: 048
     Dates: start: 20110302, end: 20110504
  11. PREVACID [Concomitant]
  12. ALPRAZOLAM [Concomitant]

REACTIONS (5)
  - ATRIAL FIBRILLATION [None]
  - BLOOD PRESSURE INCREASED [None]
  - HEART RATE INCREASED [None]
  - DRUG INEFFECTIVE FOR UNAPPROVED INDICATION [None]
  - MEDICATION RESIDUE [None]
